FAERS Safety Report 7835578-9 (Version None)
Quarter: 2011Q4

REPORT INFORMATION
  Report Type: 
  Country: None (occurrence: None)
  Receive Date: 20111020
  Receipt Date: 20111007
  Transmission Date: 20120403
  Serious: Yes (Other)
  Sender: FDA-Public Use
  Company Number: MC201100373

PATIENT
  Age: 74 Year
  Sex: Male

DRUGS (5)
  1. ASPIRIN [Suspect]
     Indication: ACUTE CORONARY SYNDROME
     Dosage: 100 MG
     Dates: start: 20110511, end: 20110511
  2. ANGIOMAX [Suspect]
     Dosage: 250 MG, INTRAVENOUS
     Route: 042
     Dates: start: 20110511, end: 20110511
  3. ARIXTRA [Suspect]
     Dosage: 2.5 MG, QD, SUBCUTANEOUS
     Route: 058
     Dates: start: 20110511, end: 20110511
  4. PLAVIX [Suspect]
     Indication: ACUTE CORONARY SYNDROME
     Dosage: 300 MG, QD, ORAL
     Route: 048
     Dates: start: 20110511, end: 20110511
  5. PANTOPRAZOLE [Concomitant]

REACTIONS (2)
  - ANAEMIA [None]
  - COAGULOPATHY [None]
